FAERS Safety Report 8550358 (Version 2)
Quarter: 2012Q4

REPORT INFORMATION
  Report Type: Report from Study
  Country: US (occurrence: US)
  Receive Date: 20120507
  Receipt Date: 20120906
  Transmission Date: 20130627
  Serious: Yes (Hospitalization)
  Sender: FDA-Public Use
  Company Number: US-ABBOTT-12P-163-0930056-00

PATIENT
  Age: 28 Year
  Sex: Female
  Weight: 108.96 kg

DRUGS (7)
  1. HUMIRA 40 MG/ 0.8 ML PRE-FILLED SYRINGE [Suspect]
     Indication: RHEUMATOID ARTHRITIS
     Dates: start: 20040820, end: 20040907
  2. STEROID INJECTION [Concomitant]
     Indication: MATERNAL THERAPY TO ENHANCE FOETAL LUNG MATURITY
     Route: 050
     Dates: start: 20050306, end: 20050306
  3. STOOL SOFTENER NOS [Concomitant]
     Indication: PRODUCT USED FOR UNKNOWN INDICATION
     Route: 048
     Dates: start: 20050222, end: 20050320
  4. CAFFEINE [Concomitant]
     Indication: PRODUCT USED FOR UNKNOWN INDICATION
     Route: 048
     Dates: start: 20040820, end: 20040930
  5. CAFFEINE [Concomitant]
     Route: 048
     Dates: start: 20041001, end: 20041013
  6. CAFFEINE [Concomitant]
     Route: 048
     Dates: start: 20041014, end: 20050320
  7. PRENATAL VITAMINS NOS [Concomitant]
     Indication: PRODUCT USED FOR UNKNOWN INDICATION
     Route: 048
     Dates: start: 20050109, end: 20050514

REACTIONS (9)
  - Shortened cervix [Recovered/Resolved]
  - Uterine contractions abnormal [Recovered/Resolved]
  - Hypothyroidism [Unknown]
  - Urinary tract infection [Recovered/Resolved]
  - Headache [Unknown]
  - Dyspepsia [Unknown]
  - Alpha 1 foetoprotein increased [Unknown]
  - Gestational diabetes [Unknown]
  - Bacterial infection [Unknown]
